FAERS Safety Report 16413397 (Version 2)
Quarter: 2019Q3

REPORT INFORMATION
  Report Type: Spontaneous
  Country: PL (occurrence: PL)
  Receive Date: 20190611
  Receipt Date: 20190905
  Transmission Date: 20191004
  Serious: Yes (Other)
  Sender: FDA-Public Use
  Company Number: PL-ROCHE-2330948

PATIENT
  Age: 43 Year
  Sex: Male

DRUGS (7)
  1. RITUXIMAB. [Suspect]
     Active Substance: RITUXIMAB
     Indication: B-CELL LYMPHOMA
     Route: 058
     Dates: start: 20170324, end: 20170728
  2. RITUXIMAB. [Suspect]
     Active Substance: RITUXIMAB
     Indication: B-CELL LYMPHOMA
     Dosage: R-CHOP 8 CYCLES
     Route: 042
     Dates: start: 20150724, end: 20160105
  3. VINCRISTINE [Suspect]
     Active Substance: VINCRISTINE
     Indication: B-CELL LYMPHOMA
     Route: 042
     Dates: start: 20150724, end: 20160105
  4. PREDNISOLONE. [Suspect]
     Active Substance: PREDNISOLONE
     Indication: B-CELL LYMPHOMA
     Route: 042
  5. RITUXIMAB. [Suspect]
     Active Substance: RITUXIMAB
     Dosage: SUPPORTING TREATMENT WITH RITUXIMAB 9 CYCLES, EVERY 8 WEEKS
     Route: 042
     Dates: start: 20160415, end: 20170127
  6. CYCLOPHOSPHAMIDE. [Suspect]
     Active Substance: CYCLOPHOSPHAMIDE
     Indication: B-CELL LYMPHOMA
     Route: 042
     Dates: start: 20150724, end: 20160105
  7. DOXORUBICIN [Suspect]
     Active Substance: DOXORUBICIN
     Indication: B-CELL LYMPHOMA
     Route: 042
     Dates: start: 20150724, end: 20160105

REACTIONS (7)
  - Drug resistance [Unknown]
  - B-cell lymphoma [Unknown]
  - Retroperitoneal lymphadenopathy [Unknown]
  - Polyneuropathy [Unknown]
  - Hypoaesthesia [Unknown]
  - Lymphoedema [Unknown]
  - Gastrointestinal disorder [Unknown]
